FAERS Safety Report 8072000-4 (Version None)
Quarter: 2012Q1

REPORT INFORMATION
  Report Type: 
  Country: None (occurrence: None)
  Receive Date: 20120124
  Receipt Date: 20120124
  Transmission Date: 20120608
  Serious: Yes (Other)
  Sender: FDA-Public Use
  Company Number: None

PATIENT
  Age: 89 Year
  Sex: Male

DRUGS (1)
  1. XALATAN [Suspect]
     Dosage: 1 DROP LEFT EYE DAILY

REACTIONS (1)
  - DRUG INEFFECTIVE [None]
